FAERS Safety Report 9293175 (Version 2)
Quarter: 2013Q3

REPORT INFORMATION
  Report Type: Spontaneous
  Country: JP (occurrence: JP)
  Receive Date: 20130516
  Receipt Date: 20130801
  Transmission Date: 20140515
  Serious: Yes (Hospitalization)
  Sender: FDA-Public Use
  Company Number: JP-BAXTER-2013BAX002460

PATIENT
  Age: 37 Year
  Sex: Male

DRUGS (1)
  1. GAMMAGARD FOR INJECTION 2.5G [Suspect]
     Indication: BRUTON^S AGAMMAGLOBULINAEMIA
     Route: 042

REACTIONS (1)
  - Cerebral infarction [Recovering/Resolving]
